FAERS Safety Report 10059973 (Version 1)
Quarter: 2014Q2

REPORT INFORMATION
  Report Type: Spontaneous
  Country: DE (occurrence: DE)
  Receive Date: 20140404
  Receipt Date: 20140404
  Transmission Date: 20141212
  Serious: Yes (Hospitalization)
  Sender: FDA-Public Use
  Company Number: DE-GLAXOSMITHKLINE-D0083417A

PATIENT
  Age: 76 Year
  Sex: Male
  Weight: 78 kg

DRUGS (5)
  1. CEFUHEXAL [Suspect]
     Indication: BRONCHITIS
     Dosage: 250MG TWICE PER DAY
     Route: 048
     Dates: start: 20140320, end: 20140325
  2. MUCOSOLVAN [Suspect]
     Indication: BRONCHITIS
     Dosage: 75MG PER DAY
     Route: 048
     Dates: start: 20140320, end: 20140325
  3. LEVOTHYROXINE SODIUM [Concomitant]
     Route: 048
  4. DIPENTUM [Concomitant]
     Route: 048
  5. BRISERIN [Concomitant]
     Route: 048

REACTIONS (3)
  - Pulmonary haemorrhage [Recovering/Resolving]
  - Haemoptysis [Recovering/Resolving]
  - Cough [Recovering/Resolving]
